FAERS Safety Report 9407588 (Version 3)
Quarter: 2013Q3

REPORT INFORMATION
  Report Type: Report from Study
  Country: PE (occurrence: PE)
  Receive Date: 20130718
  Receipt Date: 20130825
  Transmission Date: 20140515
  Serious: Yes (Disabling)
  Sender: FDA-Public Use
  Company Number: PE-ROCHE-1250131

PATIENT
  Age: 40 Year
  Sex: Female

DRUGS (5)
  1. ACTEMRA [Suspect]
     Indication: RHEUMATOID ARTHRITIS
     Route: 042
     Dates: start: 20130106
  2. CELECOXIB [Suspect]
     Indication: PRODUCT USED FOR UNKNOWN INDICATION
     Dosage: 20 MG/24 HRS
     Route: 048
  3. METHOTREXATE [Concomitant]
     Dosage: 20 MG/ML
     Route: 065
  4. MEDROL [Concomitant]
     Dosage: 4 MG/24 HRS
     Route: 065
  5. PREDNISONE [Concomitant]
     Dosage: 20 MG/24 HRS
     Route: 065

REACTIONS (4)
  - Arthralgia [Not Recovered/Not Resolved]
  - No therapeutic response [Unknown]
  - Bursitis [Not Recovered/Not Resolved]
  - Nasopharyngitis [Recovered/Resolved]
